FAERS Safety Report 21300832 (Version 1)
Quarter: 2022Q3

REPORT INFORMATION
  Report Type: Spontaneous
  Country: DK (occurrence: DK)
  Receive Date: 20220907
  Receipt Date: 20220907
  Transmission Date: 20221026
  Serious: Yes (Hospitalization)
  Sender: FDA-Public Use
  Company Number: None

PATIENT
  Age: 72 Year
  Sex: Female
  Weight: 108 kg

DRUGS (2)
  1. OXYCODONE HYDROCHLORIDE [Suspect]
     Active Substance: OXYCODONE HYDROCHLORIDE
     Indication: Pain
     Dosage: DOSAGE: 1 TABLET AS NECESSARY MAX 4 TIMES DAILY. STRENGTH: 10 MG, DURATION : 3 DAYS, UNIT DOSE: 10 M
     Dates: start: 20220809, end: 20220812
  2. OXYCODONE HYDROCHLORIDE [Suspect]
     Active Substance: OXYCODONE HYDROCHLORIDE
     Indication: Pain
     Dosage: STRENGTH: 10 MG, UNIT DOSE: 20 MG, FREQUENCY TIME : 1 DAY, DURATION : 3 DAY
     Dates: start: 20220809, end: 20220812

REACTIONS (3)
  - Apnoeic attack [Recovered/Resolved]
  - Depressed level of consciousness [Recovering/Resolving]
  - Delirium [Recovered/Resolved]

NARRATIVE: CASE EVENT DATE: 20220801
